FAERS Safety Report 21378758 (Version 2)
Quarter: 2023Q1

REPORT INFORMATION
  Report Type: Spontaneous
  Country: JP (occurrence: JP)
  Receive Date: 20220927
  Receipt Date: 20230110
  Transmission Date: 20230418
  Serious: Yes (Death, Hospitalization)
  Sender: FDA-Public Use
  Company Number: JP-KERYX BIOPHARMACEUTICALS INC.-JP-AKEB-22-022332

PATIENT

DRUGS (1)
  1. FERRIC CITRATE ANHYDROUS [Suspect]
     Active Substance: FERRIC CITRATE ANHYDROUS
     Indication: Product used for unknown indication
     Dosage: UNK
     Route: 048
     Dates: start: 2015

REACTIONS (1)
  - Neoplasm malignant [Fatal]

NARRATIVE: CASE EVENT DATE: 20160101
